FAERS Safety Report 24832022 (Version 1)
Quarter: 2025Q1

REPORT INFORMATION
  Report Type: Report from Study
  Country: US (occurrence: US)
  Receive Date: 20250110
  Receipt Date: 20250110
  Transmission Date: 20250409
  Serious: Yes (Other)
  Sender: ALEXION PHARMACEUTICALS
  Company Number: US-AstraZeneca-CH-00782006A

PATIENT
  Weight: 55 kg

DRUGS (4)
  1. SELUMETINIB [Suspect]
     Active Substance: SELUMETINIB
     Indication: Neurofibromatosis
     Dosage: 40 MILLIGRAM, BID
  2. SELUMETINIB [Suspect]
     Active Substance: SELUMETINIB
     Dosage: 40 MILLIGRAM, BID
     Route: 048
  3. SELUMETINIB [Suspect]
     Active Substance: SELUMETINIB
     Dosage: 40 MILLIGRAM, BID
  4. SELUMETINIB [Suspect]
     Active Substance: SELUMETINIB
     Dosage: 40 MILLIGRAM, BID
     Route: 048

REACTIONS (2)
  - Sepsis [Recovered/Resolved]
  - Pharyngitis streptococcal [Recovered/Resolved]
